FAERS Safety Report 8438867-2 (Version None)
Quarter: 2012Q2

REPORT INFORMATION
  Report Type: 
  Country: None (occurrence: None)
  Receive Date: 20120615
  Receipt Date: 20120605
  Transmission Date: 20120825
  Serious: Yes (Hospitalization)
  Sender: FDA-Public Use
  Company Number: TR-JNJFOC-20120303592

PATIENT
  Sex: Male
  Weight: 90 kg

DRUGS (4)
  1. ABIRATERONE ACETATE [Suspect]
     Route: 048
  2. PREDNISOLONE [Suspect]
     Indication: PROSTATE CANCER METASTATIC
     Route: 048
     Dates: start: 20111018, end: 20120118
  3. CEFTRIAXONE [Concomitant]
     Indication: URINARY TRACT INFECTION
     Dates: start: 20111204, end: 20111208
  4. ABIRATERONE ACETATE [Suspect]
     Indication: PROSTATE CANCER METASTATIC
     Dosage: THIS PERIOD COVERS 2 CYCLES (CYCLE 1 AND 2) OF THERAPY
     Route: 048
     Dates: start: 20111019, end: 20120118

REACTIONS (7)
  - DECREASED APPETITE [None]
  - VOMITING [None]
  - URINARY TRACT INFECTION [None]
  - MEMORY IMPAIRMENT [None]
  - NAUSEA [None]
  - GASTROENTERITIS [None]
  - FATIGUE [None]
